FAERS Safety Report 11782604 (Version 2)
Quarter: 2015Q4

REPORT INFORMATION
  Report Type: Spontaneous
  Country: JP (occurrence: JP)
  Receive Date: 20151127
  Receipt Date: 20151222
  Transmission Date: 20160305
  Serious: Yes (Other)
  Sender: FDA-Public Use
  Company Number: JP-009507513-1510JPN007376

PATIENT
  Age: 61 Year
  Sex: Male

DRUGS (8)
  1. REBETOL [Suspect]
     Active Substance: RIBAVIRIN
     Indication: HEPATITIS C
     Dosage: TOTAL DAILY DOSE 800 MG, DIVIDED DOSE TWICE DAILY
     Route: 048
     Dates: start: 20150701, end: 20150831
  2. REBETOL [Suspect]
     Active Substance: RIBAVIRIN
     Dosage: TOTAL DAILY DOSE 200 MG, DIVIDED DOSE FREQUENCY UNKNOWN
     Route: 048
     Dates: start: 20151013, end: 201511
  3. SIMEPREVIR [Concomitant]
     Active Substance: SIMEPREVIR
     Dosage: 100 MG, QD, SOVRIAD
     Route: 048
     Dates: start: 20150701, end: 201509
  4. REBETOL [Suspect]
     Active Substance: RIBAVIRIN
     Dosage: UNK
     Route: 048
     Dates: start: 20151124
  5. PEGINTRON [Suspect]
     Active Substance: PEGINTERFERON ALFA-2B
     Dosage: UNK
     Route: 058
     Dates: start: 20151124
  6. REBETOL [Suspect]
     Active Substance: RIBAVIRIN
     Dosage: TOTAL DAILY DOSE 400 MG, DIVIDED DOSE FREQUENCY UNKNOWN
     Route: 048
     Dates: start: 20151006, end: 20151012
  7. REBETOL [Suspect]
     Active Substance: RIBAVIRIN
     Dosage: TOTAL DAILY DOSE 600 MG, DIVIDED DOSE FREQUENCY UNKNOWN
     Route: 048
     Dates: start: 20150901, end: 20151005
  8. PEGINTRON [Suspect]
     Active Substance: PEGINTERFERON ALFA-2B
     Indication: HEPATITIS C
     Dosage: 100 MICROGRAM, QW
     Route: 058
     Dates: start: 20150701, end: 201511

REACTIONS (1)
  - Haemoglobin decreased [Recovered/Resolved]

NARRATIVE: CASE EVENT DATE: 20150901
